FAERS Safety Report 8474693-6 (Version None)
Quarter: 2012Q2

REPORT INFORMATION
  Report Type: 
  Country: None (occurrence: None)
  Receive Date: 20120628
  Receipt Date: 20120623
  Transmission Date: 20120825
  Serious: Yes (Other)
  Sender: FDA-Public Use
  Company Number: FR-PFIZER INC-2012151962

PATIENT
  Age: 64 Year
  Sex: Female
  Weight: 59 kg

DRUGS (1)
  1. PF-02341066 [Suspect]
     Indication: LUNG CARCINOMA CELL TYPE UNSPECIFIED STAGE III
     Dosage: 250 MG, 2X/DAY
     Route: 048
     Dates: start: 20110808

REACTIONS (4)
  - TRANSAMINASES INCREASED [None]
  - RENAL FAILURE [None]
  - NAUSEA [None]
  - NEUTROPENIA [None]
